FAERS Safety Report 6051374-X (Version None)
Quarter: 2009Q1

REPORT INFORMATION
  Report Type: 
  Country: None (occurrence: None)
  Receive Date: 20090121
  Receipt Date: 20090102
  Transmission Date: 20090719
  Serious: Yes (Hospitalization, Disabling, Other)
  Sender: FDA-Public Use
  Company Number: 136835

PATIENT
  Age: 33 Year
  Sex: Male

DRUGS (9)
  1. FLUCONAZOLE [Suspect]
     Indication: FUNGUS SPUTUM TEST POSITIVE
     Dosage: 50 MG (UNKNOWN) PARENTERAL
     Route: 051
     Dates: start: 20081209, end: 20081209
  2. AMOXICILLIN [Concomitant]
  3. CLARITHROMYCIN 500 MG POWDER FOR INFUSION (CLARITHROMYCIN) [Concomitant]
  4. CO-AMOXICLAV /00756801/ [Concomitant]
  5. CYCLIZINE [Concomitant]
  6. ENOXAPARIN SODIUM [Concomitant]
  7. METHADONE INJECTION BP INJECTION, SOLUTION (METHADONE) [Concomitant]
  8. SODIUM CHLORIDE [Concomitant]
  9. NOPAP (PARACETAMOL) [Concomitant]

REACTIONS (2)
  - ERYTHEMA [None]
  - URTICARIA [None]
